FAERS Safety Report 9716962 (Version 1)
Quarter: 2013Q4

REPORT INFORMATION
  Report Type: Spontaneous
  Country: US (occurrence: US)
  Receive Date: 20131127
  Receipt Date: 20131127
  Transmission Date: 20140711
  Serious: No
  Sender: FDA-Public Use
  Company Number: US-GILEAD-2009-0020142

PATIENT
  Age: 71 Year
  Sex: Female
  Weight: 66.22 kg

DRUGS (4)
  1. LETAIRIS [Suspect]
     Indication: PULMONARY ARTERIAL HYPERTENSION
     Route: 048
  2. PRAVACHOL [Concomitant]
     Route: 048
  3. LOTENSIN HCT [Concomitant]
     Route: 048
  4. ASMANEX [Concomitant]
     Route: 055

REACTIONS (2)
  - Lethargy [Unknown]
  - Oedema [Unknown]
